FAERS Safety Report 5573020-1 (Version None)
Quarter: 2007Q4

REPORT INFORMATION
  Report Type: 
  Country: None (occurrence: None)
  Receive Date: 20071224
  Receipt Date: 20071213
  Transmission Date: 20080405
  Serious: Yes (Hospitalization, Disabling)
  Sender: FDA-Public Use
  Company Number: ES-JNJFOC-20071203467

PATIENT
  Age: 56 Year
  Sex: Female

DRUGS (6)
  1. TAVANIC [Suspect]
     Indication: INFECTION PROPHYLAXIS
     Route: 048
  2. BUDESONIDE [Concomitant]
     Route: 065
  3. DACORTIN [Concomitant]
     Route: 065
  4. DACORTIN [Concomitant]
     Route: 065
  5. FORMOTEROL FUMARATE [Concomitant]
     Route: 065
  6. SINGULAIR [Concomitant]
     Route: 065

REACTIONS (4)
  - ARTHRALGIA [None]
  - ATAXIA [None]
  - MUSCULAR WEAKNESS [None]
  - TENDON PAIN [None]
